FAERS Safety Report 14889912 (Version 1)
Quarter: 2018Q2

REPORT INFORMATION
  Report Type: Spontaneous
  Country: IT (occurrence: IT)
  Receive Date: 20180514
  Receipt Date: 20180514
  Transmission Date: 20180711
  Serious: Yes (Hospitalization)
  Sender: FDA-Public Use
  Company Number: IT-TEVA-2018-IT-890692

PATIENT
  Age: 88 Year
  Sex: Male

DRUGS (4)
  1. RIVOTRIL [Concomitant]
     Active Substance: CLONAZEPAM
  2. CARDIRENE [Suspect]
     Active Substance: ASPIRIN DL-LYSINE
     Indication: CARDIOVASCULAR EVENT PROPHYLAXIS
     Route: 065
  3. TORASEMIDE [Concomitant]
     Active Substance: TORSEMIDE
  4. PAROXETINE. [Suspect]
     Active Substance: PAROXETINE
     Indication: DEPRESSION
     Route: 065

REACTIONS (3)
  - Ischaemic stroke [Unknown]
  - Vertigo [Unknown]
  - Headache [Unknown]
